FAERS Safety Report 4737321-9 (Version None)
Quarter: 2005Q3

REPORT INFORMATION
  Report Type: 
  Country: None (occurrence: None)
  Receive Date: 20050808
  Receipt Date: 20050624
  Transmission Date: 20060218
  Serious: Yes (Other)
  Sender: FDA-Public Use
  Company Number: PHBS2005BE09253

PATIENT
  Age: 55 Year
  Sex: Female

DRUGS (3)
  1. ZOMETA [Suspect]
     Indication: METASTASES TO BONE
     Dosage: UNK, UNK
     Route: 042
     Dates: start: 20040701, end: 20050701
  2. RADIATION THERAPY [Concomitant]
     Route: 065
     Dates: start: 20040701
  3. ARIMIDEX [Concomitant]
     Route: 065
     Dates: start: 20040701

REACTIONS (13)
  - ASEPTIC NECROSIS BONE [None]
  - BONE DISORDER [None]
  - BONE PAIN [None]
  - INFECTION [None]
  - MASTECTOMY [None]
  - PERIODONTAL DISEASE [None]
  - PURULENT DISCHARGE [None]
  - SWELLING [None]
  - TOOTH DISORDER [None]
  - TOOTH EXTRACTION [None]
  - TOOTH LOSS [None]
  - TOOTHACHE [None]
  - WOUND DEBRIDEMENT [None]
